FAERS Safety Report 21156379 (Version 1)
Quarter: 2022Q3

REPORT INFORMATION
  Report Type: Spontaneous
  Country: US (occurrence: None)
  Receive Date: 20220729
  Receipt Date: 20220729
  Transmission Date: 20221026
  Serious: No
  Sender: FDA-Public Use
  Company Number: None

PATIENT
  Age: 67 Year
  Sex: Male
  Weight: 67.5 kg

DRUGS (10)
  1. CYCLOPHOSPHAMIDE [Suspect]
     Active Substance: CYCLOPHOSPHAMIDE
     Indication: Prostate cancer
     Dosage: FREQUENCY : DAILY;?
     Route: 048
  2. ONDANSETRON [Concomitant]
     Active Substance: ONDANSETRON
  3. PANTOPRAZOLE [Concomitant]
     Active Substance: PANTOPRAZOLE
  4. SULFAMETHOXAZOLE\TRIMETHOPRIM [Concomitant]
     Active Substance: SULFAMETHOXAZOLE\TRIMETHOPRIM
  5. PREDNISONE [Concomitant]
     Active Substance: PREDNISONE
  6. ATENOLOL [Concomitant]
     Active Substance: ATENOLOL
  7. calcium carbonate-cholecalciferol [Concomitant]
  8. LEVOTHYROXINE [Concomitant]
     Active Substance: LEVOTHYROXINE
  9. LUPRON [Concomitant]
     Active Substance: LEUPROLIDE ACETATE
  10. SERTRALINE [Concomitant]
     Active Substance: SERTRALINE HYDROCHLORIDE

REACTIONS (1)
  - Disease progression [None]
